FAERS Safety Report 6079182-4 (Version None)
Quarter: 2009Q1

REPORT INFORMATION
  Report Type: 
  Country: None (occurrence: None)
  Receive Date: 20090216
  Receipt Date: 20090212
  Transmission Date: 20090719
  Serious: Yes (Other)
  Sender: FDA-Public Use
  Company Number: B0557954A

PATIENT
  Age: 12 Year
  Sex: Female

DRUGS (3)
  1. RELENZA [Suspect]
     Indication: DRUG USE FOR UNKNOWN INDICATION
     Dosage: 10MG TWICE PER DAY
     Route: 055
     Dates: start: 20090131
  2. CLARITHROMYCIN [Concomitant]
     Indication: COUGH
     Dosage: 400MG PER DAY
     Route: 048
     Dates: start: 20090131, end: 20090203
  3. ASTOMIN [Concomitant]
     Indication: COUGH
     Dosage: 30MG PER DAY
     Route: 048
     Dates: start: 20090131, end: 20090203

REACTIONS (5)
  - ABNORMAL BEHAVIOUR [None]
  - AGGRESSION [None]
  - FEELING ABNORMAL [None]
  - HALLUCINATION, VISUAL [None]
  - PYREXIA [None]
